FAERS Safety Report 6925033-2 (Version None)
Quarter: 2010Q3

REPORT INFORMATION
  Report Type: 
  Country: None (occurrence: None)
  Receive Date: 20100810
  Receipt Date: 20100729
  Transmission Date: 20110219
  Serious: Yes (Hospitalization, Other)
  Sender: FDA-Public Use
  Company Number: 014061

PATIENT
  Sex: Female
  Weight: 73 kg

DRUGS (2)
  1. CIMZIA [Suspect]
     Indication: CROHN'S DISEASE
     Dosage: (400 MG 1X/MONTH SUBCUTANEOUS)
     Route: 058
     Dates: start: 20090301, end: 20090901
  2. COZAAR [Concomitant]

REACTIONS (2)
  - HISTOPLASMOSIS [None]
  - LUNG NEOPLASM [None]
